FAERS Safety Report 24557694 (Version 2)
Quarter: 2025Q2

REPORT INFORMATION
  Report Type: Spontaneous
  Country: BE (occurrence: BE)
  Receive Date: 20241028
  Receipt Date: 20250515
  Transmission Date: 20250716
  Serious: Yes (Other)
  Sender: AUROBINDO
  Company Number: BE-EUROCEPT-EC20240186

PATIENT
  Age: 60 Year
  Sex: Male

DRUGS (17)
  1. ALPRAZOLAM [Suspect]
     Active Substance: ALPRAZOLAM
     Indication: Delirium
     Dosage: 0.5 MILLIGRAM, 3 TIMES A DAY (3 TIMES DAILY)
     Route: 065
  2. ALPRAZOLAM [Suspect]
     Active Substance: ALPRAZOLAM
     Indication: Mania
  3. CARBOPLATIN [Suspect]
     Active Substance: CARBOPLATIN
     Indication: Small cell lung cancer
     Route: 065
  4. OLANZAPINE [Suspect]
     Active Substance: OLANZAPINE
     Indication: Delirium
     Dosage: 5 MILLIGRAM, TWO TIMES A DAY (2 TIMES DAILY)
     Route: 065
  5. OLANZAPINE [Suspect]
     Active Substance: OLANZAPINE
     Indication: Mania
     Dosage: 10 MILLIGRAM, TWO TIMES A DAY (10MG 2 TIMES DAILY.)
     Route: 065
  6. OLANZAPINE [Suspect]
     Active Substance: OLANZAPINE
     Dosage: 10 MILLIGRAM, 3 TIMES A DAY (10MG 3 TIMES DAILY.)
     Route: 065
  7. ATEZOLIZUMAB [Suspect]
     Active Substance: ATEZOLIZUMAB
     Indication: Small cell lung cancer
     Route: 065
  8. ATEZOLIZUMAB [Suspect]
     Active Substance: ATEZOLIZUMAB
     Indication: Hallucination, visual
  9. ATEZOLIZUMAB [Suspect]
     Active Substance: ATEZOLIZUMAB
     Indication: Post-traumatic stress disorder
  10. DEXAMETHASONE [Suspect]
     Active Substance: DEXAMETHASONE
     Indication: Delirium
     Dosage: 8 MILLIGRAM, ONCE A DAY
     Route: 065
  11. DEXAMETHASONE [Suspect]
     Active Substance: DEXAMETHASONE
     Indication: Mania
  12. ETOPOSIDE [Suspect]
     Active Substance: ETOPOSIDE
     Indication: Small cell lung cancer
     Route: 065
  13. LORAZEPAM [Suspect]
     Active Substance: LORAZEPAM
     Indication: Delirium
     Dosage: 1 MILLIGRAM, FOUR TIMES/DAY (4 TIMES DAILY)
     Route: 065
  14. LORAZEPAM [Suspect]
     Active Substance: LORAZEPAM
     Dosage: 2.5 MILLIGRAM, 3 TIMES A DAY (3 TIMES DAILY)
     Route: 065
  15. DULOXETINE [Concomitant]
     Active Substance: DULOXETINE
     Indication: Abnormal behaviour
     Dosage: 30 MILLIGRAM, ONCE A DAY
     Route: 065
  16. DULOXETINE [Concomitant]
     Active Substance: DULOXETINE
     Indication: Hallucination, visual
  17. METHYLPREDNISOLONE [Concomitant]
     Active Substance: METHYLPREDNISOLONE
     Indication: Product used for unknown indication
     Route: 042

REACTIONS (9)
  - Pneumonia [Unknown]
  - Akathisia [Unknown]
  - Behaviour disorder [Unknown]
  - Catatonia [Unknown]
  - Hypotension [Unknown]
  - Pyrexia [Unknown]
  - Tachycardia [Unknown]
  - Urinary incontinence [Unknown]
  - Drug ineffective [Unknown]
